FAERS Safety Report 17442709 (Version 6)
Quarter: 2021Q3

REPORT INFORMATION
  Report Type: Report from Study
  Country: US (occurrence: US)
  Receive Date: 20200220
  Receipt Date: 20210920
  Transmission Date: 20211014
  Serious: Yes (Hospitalization, Other)
  Sender: FDA-Public Use
  Company Number: US-SHIRE-US202006849

PATIENT
  Sex: Female
  Weight: 62 kg

DRUGS (34)
  1. TEDUGLUTIDE [Suspect]
     Active Substance: TEDUGLUTIDE
     Dosage: 0.311 UNITS NOT PROVIDED, QD
     Route: 058
  2. TEDUGLUTIDE [Suspect]
     Active Substance: TEDUGLUTIDE
     Dosage: 0.311 UNITS NOT PROVIDED, QD
     Route: 058
  3. TEDUGLUTIDE [Suspect]
     Active Substance: TEDUGLUTIDE
     Dosage: 0.0800 UNKNOWN UNIT
     Route: 065
     Dates: start: 20210122
  4. ASPIRIN [ACETYLSALICYLIC ACID] [Concomitant]
     Active Substance: ASPIRIN
     Dosage: 81 MILLIGRAM
     Route: 065
  5. CYANOCOBALAMIN. [Concomitant]
     Active Substance: CYANOCOBALAMIN
  6. TEDUGLUTIDE [Suspect]
     Active Substance: TEDUGLUTIDE
     Indication: SHORT-BOWEL SYNDROME
     Dosage: 0.311 MILLILITER, QD
     Route: 058
  7. LEVOTHYROXINE. [Concomitant]
     Active Substance: LEVOTHYROXINE
     Dosage: 88 MICROGRAM
     Route: 065
  8. TEDUGLUTIDE [Suspect]
     Active Substance: TEDUGLUTIDE
     Indication: SHORT-BOWEL SYNDROME
     Dosage: 0.311 MILLILITER, QD
     Route: 058
  9. TEDUGLUTIDE [Suspect]
     Active Substance: TEDUGLUTIDE
     Dosage: 0.311 UNITS NOT PROVIDED, QD
     Route: 058
     Dates: start: 20170504
  10. TEDUGLUTIDE [Suspect]
     Active Substance: TEDUGLUTIDE
     Dosage: 0.311 UNITS NOT PROVIDED, QD
     Route: 058
     Dates: start: 20170504
  11. TEDUGLUTIDE [Suspect]
     Active Substance: TEDUGLUTIDE
     Dosage: 0.311 UNITS NOT PROVIDED, QD
     Route: 058
  12. TEDUGLUTIDE [Suspect]
     Active Substance: TEDUGLUTIDE
     Dosage: 0.311 UNITS NOT PROVIDED, QD
     Route: 058
  13. TEDUGLUTIDE [Suspect]
     Active Substance: TEDUGLUTIDE
     Dosage: 0.0800 UNKNOWN UNIT
     Route: 065
     Dates: start: 20210122
  14. TEDUGLUTIDE [Suspect]
     Active Substance: TEDUGLUTIDE
     Indication: SHORT-BOWEL SYNDROME
     Dosage: 0.311 MILLILITER, QD
     Route: 058
  15. TEDUGLUTIDE [Suspect]
     Active Substance: TEDUGLUTIDE
     Indication: SHORT-BOWEL SYNDROME
     Dosage: 0.311 MILLILITER, QD
     Route: 058
  16. TEDUGLUTIDE [Suspect]
     Active Substance: TEDUGLUTIDE
     Dosage: 0.311 UNITS NOT PROVIDED, QD
     Route: 058
  17. TEDUGLUTIDE [Suspect]
     Active Substance: TEDUGLUTIDE
     Dosage: 0.311 UNITS NOT PROVIDED, QD
     Route: 058
  18. TEDUGLUTIDE [Suspect]
     Active Substance: TEDUGLUTIDE
     Dosage: 0.311 UNITS NOT PROVIDED, QD
     Route: 058
     Dates: start: 20170504
  19. TEDUGLUTIDE [Suspect]
     Active Substance: TEDUGLUTIDE
     Dosage: 0.311 UNITS NOT PROVIDED, QD
     Route: 058
  20. SODIUM BICARBONATE. [Concomitant]
     Active Substance: SODIUM BICARBONATE
     Dosage: 325 MILLIGRAM
     Route: 065
  21. TEDUGLUTIDE [Suspect]
     Active Substance: TEDUGLUTIDE
     Dosage: 0.311 UNITS NOT PROVIDED, QD
     Route: 058
  22. TEDUGLUTIDE [Suspect]
     Active Substance: TEDUGLUTIDE
     Dosage: 0.0800 UNKNOWN UNIT
     Route: 065
     Dates: start: 20210122
  23. VITAMIN D2 [Concomitant]
     Active Substance: ERGOCALCIFEROL
     Dosage: 100 MILLIGRAM
     Route: 065
  24. ATORVASTATIN CALCIUM. [Concomitant]
     Active Substance: ATORVASTATIN CALCIUM
     Dosage: 40 MILLIGRAM
     Route: 065
  25. CARBIDOPA LEVODOPA [Concomitant]
     Active Substance: CARBIDOPA\LEVODOPA
  26. TEDUGLUTIDE [Suspect]
     Active Substance: TEDUGLUTIDE
     Dosage: 0.0800 UNKNOWN UNIT
     Route: 065
     Dates: start: 20210122
  27. IRON [Concomitant]
     Active Substance: IRON
     Dosage: 45 MILLIGRAM
     Route: 050
  28. MAGNESIUM OXIDE. [Concomitant]
     Active Substance: MAGNESIUM OXIDE
     Dosage: 100 PERCENT
     Route: 065
  29. MODERNA COVID?19 VACCINE [Concomitant]
     Active Substance: CX-024414
  30. TEDUGLUTIDE [Suspect]
     Active Substance: TEDUGLUTIDE
     Dosage: 0.311 UNITS NOT PROVIDED, QD
     Route: 058
     Dates: start: 20170504
  31. BISOPROLOL FUMARATE. [Concomitant]
     Active Substance: BISOPROLOL FUMARATE
     Dosage: 5 MILLIGRAM
     Route: 065
  32. ALLOPURINOL. [Concomitant]
     Active Substance: ALLOPURINOL
     Dosage: 100 MILLIGRAM
     Route: 065
  33. FUROSEMIDE. [Concomitant]
     Active Substance: FUROSEMIDE
     Dosage: 20 MILLIGRAM
  34. VITAMIN D2 [Concomitant]
     Active Substance: ERGOCALCIFEROL
     Dosage: 10 MICROGRAM
     Route: 065

REACTIONS (10)
  - Blood potassium decreased [Unknown]
  - Peripheral swelling [Unknown]
  - Weight decreased [Unknown]
  - Haemoglobin decreased [Unknown]
  - Parkinson^s disease [Unknown]
  - Renal failure [Unknown]
  - Diarrhoea [Not Recovered/Not Resolved]
  - Inappropriate schedule of product administration [Not Recovered/Not Resolved]
  - Inability to afford medication [Unknown]
  - Blood potassium increased [Unknown]
